FAERS Safety Report 5880288-0 (Version None)
Quarter: 2008Q3

REPORT INFORMATION
  Report Type: 
  Country: None (occurrence: None)
  Receive Date: 20080912
  Receipt Date: 20080909
  Transmission Date: 20090109
  Serious: Yes (Death, Other)
  Sender: FDA-Public Use
  Company Number: PHBS2008ES05685

PATIENT
  Age: 61 Year
  Sex: Male

DRUGS (2)
  1. CYCLOSPORINE [Suspect]
     Indication: RENAL TRANSPLANT
  2. PREDNISONE TAB [Suspect]
     Indication: RENAL TRANSPLANT

REACTIONS (12)
  - CHEST PAIN [None]
  - CHILLS [None]
  - CHRONIC ALLOGRAFT NEPHROPATHY [None]
  - DYSPNOEA [None]
  - HAEMODIALYSIS [None]
  - HAEMOPTYSIS [None]
  - HEPATOTOXICITY [None]
  - MECHANICAL VENTILATION [None]
  - MULTI-ORGAN FAILURE [None]
  - PNEUMONIA LEGIONELLA [None]
  - PYREXIA [None]
  - RENAL FAILURE ACUTE [None]
